FAERS Safety Report 10154362 (Version 2)
Quarter: 2014Q2

REPORT INFORMATION
  Report Type: Spontaneous
  Country: US (occurrence: US)
  Receive Date: 20140506
  Receipt Date: 20140603
  Transmission Date: 20141212
  Serious: No
  Sender: FDA-Public Use
  Company Number: US-PFIZER INC-2014122576

PATIENT
  Age: 45 Year
  Sex: Female
  Weight: 29.48 kg

DRUGS (5)
  1. XANAX [Suspect]
     Indication: ANXIETY DISORDER
     Dosage: 1 MG, 3X/DAY
     Dates: start: 1999
  2. GEODON [Concomitant]
     Indication: BIPOLAR DISORDER
     Dosage: 75 MG, DAILY
  3. PROZAC [Concomitant]
     Indication: ANXIETY DISORDER
     Dosage: UNK
  4. PROZAC [Concomitant]
     Indication: DEPRESSION
  5. WELLBUTRIN [Concomitant]
     Indication: BIPOLAR I DISORDER
     Dosage: UNK
     Dates: start: 201405

REACTIONS (1)
  - Amnesia [Unknown]
